FAERS Safety Report 4503736-7 (Version None)
Quarter: 2004Q4

REPORT INFORMATION
  Report Type: 
  Country: None (occurrence: None)
  Receive Date: 20040928
  Receipt Date: 20040614
  Transmission Date: 20050328
  Serious: No
  Sender: FDA-Public Use
  Company Number: 04P-163-0263668-00

PATIENT
  Age: 27 Year
  Sex: Female
  Weight: 64.8644 kg

DRUGS (5)
  1. HUMIRA [Suspect]
     Indication: RHEUMATOID ARTHRITIS
     Dosage: 40 MG, 1 IN 2 WK, SUBCUTANEOUS
     Route: 058
     Dates: start: 20040612
  2. SULFASALAZINE [Concomitant]
  3. CELECOXIB [Concomitant]
  4. ESTROGEN NOS [Concomitant]
  5. BIRTH CONTROL [Concomitant]

REACTIONS (2)
  - HYPOAESTHESIA [None]
  - PARAESTHESIA [None]
